FAERS Safety Report 8376172-3 (Version None)
Quarter: 2012Q2

REPORT INFORMATION
  Report Type: 
  Country: None (occurrence: None)
  Receive Date: 20120522
  Receipt Date: 20120511
  Transmission Date: 20120825
  Serious: Yes (Hospitalization, Other)
  Sender: FDA-Public Use
  Company Number: US-SANOFI-AVENTIS-2012SA033573

PATIENT
  Age: 93 Year
  Sex: Female
  Weight: 52 kg

DRUGS (1)
  1. PLAVIX [Suspect]
     Indication: STENT PLACEMENT
     Route: 048
     Dates: start: 19970101

REACTIONS (7)
  - ARTERIAL STENOSIS [None]
  - ULCER HAEMORRHAGE [None]
  - MALAISE [None]
  - PNEUMONIA [None]
  - COUGH [None]
  - HAEMORRHAGIC ANAEMIA [None]
  - MEDICATION ERROR [None]
